FAERS Safety Report 6505966-1 (Version None)
Quarter: 2009Q4

REPORT INFORMATION
  Report Type: 
  Country: None (occurrence: None)
  Receive Date: 20091218
  Receipt Date: 20091121
  Transmission Date: 20100525
  Serious: Yes (Hospitalization)
  Sender: FDA-Public Use
  Company Number: US-PFIZER INC-2008153219

PATIENT
  Sex: Male
  Weight: 43.4 kg

DRUGS (28)
  1. VORICONAZOLE [Suspect]
     Indication: PROPHYLAXIS
     Dosage: 260 MG, 2X/DAY,  Q12
     Route: 042
     Dates: start: 20081205, end: 20081206
  2. VORICONAZOLE [Suspect]
     Dosage: 174 MG, 2X/DAY, Q12
     Route: 042
     Dates: start: 20081206, end: 20081207
  3. CYTARABINE [Concomitant]
     Indication: CHEMOTHERAPY
     Dosage: 4000 MG, 1X/DAY, Q24AM
     Route: 042
     Dates: start: 20081203, end: 20081206
  4. CYTARABINE [Concomitant]
     Dosage: 65 MG, 1X/DAY, Q24PM
     Route: 042
     Dates: start: 20081202, end: 20081206
  5. ETOPOSIDE [Concomitant]
     Indication: CHEMOTHERAPY
     Dosage: 270 MG, 1X/DAY, Q24
     Route: 042
     Dates: start: 20081203, end: 20081206
  6. CHLORPROMAZINE [Concomitant]
     Dosage: 15 MG, UNK
     Route: 042
     Dates: start: 20071202, end: 20081207
  7. DIPHENHYDRAMINE [Concomitant]
     Dosage: 30 MG, UNK
     Route: 042
     Dates: start: 20071202, end: 20081207
  8. FLUCONAZOLE [Concomitant]
     Dosage: 100 MG, UNK
     Route: 048
     Dates: start: 20080830, end: 20081203
  9. FLUCONAZOLE [Concomitant]
     Dosage: 100 MG, UNK
     Route: 048
     Dates: start: 20081207
  10. INSULIN GLARGINE [Concomitant]
     Dosage: UNK
     Route: 058
     Dates: start: 20081202
  11. INSULIN LISPRO [Concomitant]
     Dosage: UNK
     Route: 058
     Dates: start: 20081205
  12. ONDANSETRON [Concomitant]
     Dosage: 24 MG, UNK
     Route: 042
     Dates: start: 20081202, end: 20081202
  13. ONDANSETRON [Concomitant]
     Dosage: 24 MG, UNK
     Route: 048
     Dates: start: 20081207
  14. LANSOPRAZOLE [Concomitant]
     Dosage: 30 MG, UNK
     Route: 048
     Dates: start: 20080830
  15. LORAZEPAM [Concomitant]
     Dosage: UNK
     Route: 042
     Dates: start: 20081202, end: 20081207
  16. PREDNISOLONE [Concomitant]
     Dosage: 24 DROPS
     Route: 061
     Dates: start: 20081202, end: 20081207
  17. SULFAMETHOXAZOLE AND TRIMETHOPRIM [Concomitant]
     Dosage: UNK
     Route: 048
     Dates: start: 20080801
  18. ACETAMINOPHEN [Concomitant]
     Dosage: 650 MG, UNK
     Route: 048
     Dates: start: 20081204
  19. APREPITANT [Concomitant]
     Dosage: UNK
     Route: 042
     Dates: start: 20081204, end: 20081207
  20. DEXAMETHASONE [Concomitant]
     Dosage: 4 MG, UNK
     Route: 042
     Dates: start: 20081205, end: 20081206
  21. GRANISETRON [Concomitant]
     Dosage: UNK
     Route: 042
     Dates: start: 20081204, end: 20081207
  22. PIPERACILLIN AND TAZOBACTAM [Concomitant]
     Dosage: 12000 MG, UNK
     Route: 042
     Dates: start: 20081204, end: 20081206
  23. VANCOMYCIN [Concomitant]
     Dosage: 1950 MG, UNK
     Route: 042
     Dates: start: 20081204, end: 20081206
  24. DIPHENHYDRAMINE [Concomitant]
     Dosage: 50 MG, UNK
     Route: 048
     Dates: start: 20081207, end: 20081207
  25. METHYLPREDNISOLONE ACETATE [Concomitant]
     Dosage: 40 MG, UNK
     Route: 042
     Dates: start: 20081207, end: 20081207
  26. MIRALAX [Concomitant]
     Dosage: 8.5 G, UNK
     Route: 048
     Dates: start: 20080801
  27. FLUCONAZOLE [Concomitant]
     Dosage: UNK
     Route: 048
     Dates: start: 20081202
  28. ONDASETRON [Concomitant]
     Dosage: UNK
     Route: 048
     Dates: start: 20081207

REACTIONS (1)
  - MUCOSAL INFLAMMATION [None]
